FAERS Safety Report 5323684-2 (Version None)
Quarter: 2007Q2

REPORT INFORMATION
  Report Type: 
  Country: None (occurrence: None)
  Receive Date: 20070514
  Receipt Date: 20070508
  Transmission Date: 20071010
  Serious: Yes (Hospitalization, Other)
  Sender: FDA-Public Use
  Company Number: GB-BAYER-200710193BNE

PATIENT
  Sex: Male

DRUGS (1)
  1. SORAFENIB [Suspect]
     Route: 065

REACTIONS (3)
  - BLOOD UREA INCREASED [None]
  - HYPOCALCAEMIA [None]
  - HYPOMAGNESAEMIA [None]
